FAERS Safety Report 6914020-6 (Version None)
Quarter: 2010Q3

REPORT INFORMATION
  Report Type: 
  Country: None (occurrence: None)
  Receive Date: 20100809
  Receipt Date: 20100727
  Transmission Date: 20110219
  Serious: Yes (Other)
  Sender: FDA-Public Use
  Company Number: PHHY2010JP49653

PATIENT

DRUGS (1)
  1. ZOMETA [Suspect]
     Indication: METASTASES TO BONE
     Dosage: 4 MG PER ADMINISTRATION AT UNSPECIFIED INTERVALS
     Route: 041
     Dates: start: 20100726

REACTIONS (1)
  - ALTERED STATE OF CONSCIOUSNESS [None]
